FAERS Safety Report 21034082 (Version 1)
Quarter: 2022Q2

REPORT INFORMATION
  Report Type: Spontaneous
  Country: US (occurrence: None)
  Receive Date: 20220630
  Receipt Date: 20220630
  Transmission Date: 20220720
  Serious: Yes (Hospitalization)
  Sender: FDA-Public Use
  Company Number: None

PATIENT
  Sex: Female

DRUGS (1)
  1. BENLYSTA [Suspect]
     Active Substance: BELIMUMAB
     Indication: Chronic inflammatory demyelinating polyradiculoneuropathy
     Dosage: 200MG  EVERY 7 DAYS SQ?
     Route: 058
     Dates: start: 202104

REACTIONS (2)
  - Blood pressure increased [None]
  - Weight decreased [None]
